FAERS Safety Report 8008624-X (Version None)
Quarter: 2011Q4

REPORT INFORMATION
  Report Type: 
  Country: None (occurrence: None)
  Receive Date: 20111221
  Receipt Date: 20111212
  Transmission Date: 20120403
  Serious: Yes (Hospitalization, Other)
  Sender: FDA-Public Use
  Company Number: AUR-APL-2011-06138

PATIENT
  Age: 40 Year
  Sex: Male
  Weight: 69.5 kg

DRUGS (6)
  1. LITHIUM CARBONATE [Suspect]
     Indication: PSYCHOTIC DISORDER
     Dosage: 900 MG (300 MG, 3 IN 1 D
  2. VALPROATE SODIUM [Concomitant]
  3. OXCARBAZEPINE [Concomitant]
  4. RISPERIDONE [Suspect]
     Indication: PSYCHOTIC DISORDER
     Dosage: 2 MG
  5. CLOZAPINE [Suspect]
     Indication: PSYCHOTIC DISORDER
     Dosage: 275 MG, 1 D
  6. HALOPERIDOL DECANOATE [Concomitant]

REACTIONS (23)
  - GRANULOCYTOSIS [None]
  - BLOOD CREATININE INCREASED [None]
  - HEPATOMEGALY [None]
  - DEPRESSED MOOD [None]
  - AKATHISIA [None]
  - ABDOMINAL PAIN [None]
  - WHITE BLOOD CELL COUNT INCREASED [None]
  - BILIRUBIN CONJUGATED INCREASED [None]
  - AKINESIA [None]
  - FLATULENCE [None]
  - NEUTROPHIL PERCENTAGE DECREASED [None]
  - ASPARTATE AMINOTRANSFERASE INCREASED [None]
  - DELUSION [None]
  - SUICIDAL IDEATION [None]
  - LACERATION [None]
  - BLOOD CALCIUM INCREASED [None]
  - BLOOD AMYLASE INCREASED [None]
  - BLOOD CHLORIDE DECREASED [None]
  - HALLUCINATION [None]
  - ALANINE AMINOTRANSFERASE INCREASED [None]
  - BLOOD GLUCOSE INCREASED [None]
  - BLOOD UREA INCREASED [None]
  - BLOOD PHOSPHORUS INCREASED [None]
